FAERS Safety Report 9910888 (Version 2)
Quarter: 2014Q1

REPORT INFORMATION
  Report Type: Spontaneous
  Country: DE (occurrence: DE)
  Receive Date: 20140219
  Receipt Date: 20140306
  Transmission Date: 20141002
  Serious: Yes (Other)
  Sender: FDA-Public Use
  Company Number: DE-ACTAVIS-2014-02759

PATIENT
  Age: 66 Year
  Sex: Female
  Weight: 83 kg

DRUGS (3)
  1. KENTERA (WATSON LABORATORIES) [Suspect]
     Indication: URINARY INCONTINENCE
     Dosage: 3.9 MG, UNKNOWN
     Route: 062
     Dates: start: 201307, end: 201401
  2. MARCUMAR [Concomitant]
     Indication: THROMBOSIS
     Dosage: UNK
     Route: 048
     Dates: start: 2010
  3. RAMIPRIL [Concomitant]
     Indication: HYPERTENSION
     Dosage: UNK
     Route: 048
     Dates: start: 201310

REACTIONS (13)
  - Poisoning [Unknown]
  - Blood pressure increased [Recovering/Resolving]
  - Micturition frequency decreased [Unknown]
  - Urine output decreased [Unknown]
  - Nausea [Not Recovered/Not Resolved]
  - Retching [Not Recovered/Not Resolved]
  - Vomiting [Not Recovered/Not Resolved]
  - Confusional state [Not Recovered/Not Resolved]
  - Dizziness [Not Recovered/Not Resolved]
  - Dyspnoea [Not Recovered/Not Resolved]
  - Paralysis [Not Recovered/Not Resolved]
  - Urinary hesitation [Not Recovered/Not Resolved]
  - Micturition urgency [Not Recovered/Not Resolved]
